FAERS Safety Report 4555321-9 (Version None)
Quarter: 2004Q4

REPORT INFORMATION
  Report Type: 
  Country: None (occurrence: None)
  Receive Date: 20041227
  Receipt Date: 20040209
  Transmission Date: 20050328
  Serious: Yes (Hospitalization)
  Sender: FDA-Public Use
  Company Number: US-JNJFOC-20040201979

PATIENT
  Sex: Female

DRUGS (3)
  1. REOPRO [Suspect]
     Indication: STENT PLACEMENT
     Dosage: INJECTION
  2. ASPIRIN [Concomitant]
  3. PLAVIX [Concomitant]

REACTIONS (2)
  - CATHETER SITE HAEMORRHAGE [None]
  - HAEMATOMA [None]
